APPROVED DRUG PRODUCT: CLONAZEPAM
Active Ingredient: CLONAZEPAM
Strength: 0.25MG
Dosage Form/Route: TABLET, ORALLY DISINTEGRATING;ORAL
Application: A211033 | Product #002 | TE Code: AB
Applicant: ALEMBIC PHARMACEUTICALS LTD
Approved: Jun 28, 2019 | RLD: No | RS: No | Type: RX